FAERS Safety Report 5682760-5 (Version None)
Quarter: 2008Q1

REPORT INFORMATION
  Report Type: 
  Country: None (occurrence: None)
  Receive Date: 20080327
  Receipt Date: 20080318
  Transmission Date: 20080703
  Serious: Yes (Death, Hospitalization)
  Sender: FDA-Public Use
  Company Number: LB-ROCHE-554268

PATIENT
  Age: 76 Year
  Sex: Female

DRUGS (1)
  1. XELODA [Suspect]
     Dosage: 1500 MG GIVEN EVERY MORNING AND 1000 MG GIVEN EVER EVENING FOR 14 DAYS WITH A ONE WEEK REST.
     Route: 048

REACTIONS (3)
  - ENCEPHALOPATHY [None]
  - MUCOSAL INFLAMMATION [None]
  - PALMAR-PLANTAR ERYTHRODYSAESTHESIA SYNDROME [None]
